FAERS Safety Report 5432315-2 (Version None)
Quarter: 2007Q3

REPORT INFORMATION
  Report Type: 
  Country: None (occurrence: None)
  Receive Date: 20070831
  Receipt Date: 20070824
  Transmission Date: 20080115
  Serious: Yes (Hospitalization, Other)
  Sender: FDA-Public Use
  Company Number: HQWYE687119JUN07

PATIENT

DRUGS (8)
  1. PANTOPRAZOLE SODIUM [Suspect]
     Indication: GASTROOESOPHAGEAL REFLUX DISEASE
     Dosage: DOSE FORM
     Route: 048
     Dates: end: 20070524
  2. AMLODIPINE BESYLATE [Concomitant]
     Route: 048
  3. METFORMIN HYDROCHLORIDE [Concomitant]
     Route: 048
  4. NITROLINGUAL [Concomitant]
     Dosage: ^2 DF^ DAILY
     Route: 045
  5. ISOSORBIDE MONONITRATE [Concomitant]
     Dosage: ^DF 1/DAY^
     Route: 048
  6. LIPITOR [Concomitant]
     Dosage: ^1 DF^ DAILY
     Route: 048
  7. PERINDOPRIL ERBUMINE [Concomitant]
     Dosage: ^DF 1/DAY^
     Route: 048
  8. ASPIRIN [Concomitant]
     Route: 048

REACTIONS (2)
  - ANAEMIA [None]
  - IRON DEFICIENCY [None]
